FAERS Safety Report 21274129 (Version 1)
Quarter: 2022Q3

REPORT INFORMATION
  Report Type: Spontaneous
  Country: US (occurrence: US)
  Receive Date: 20220831
  Receipt Date: 20220831
  Transmission Date: 20221027
  Serious: No
  Sender: FDA-Public Use
  Company Number: US-BEH-2022149003

PATIENT
  Sex: Female

DRUGS (2)
  1. HIZENTRA [Suspect]
     Active Substance: HUMAN IMMUNOGLOBULIN G
     Indication: Immunodeficiency common variable
     Dosage: 10 GRAM, QOW
     Route: 058
     Dates: start: 20220301
  2. HIZENTRA [Suspect]
     Active Substance: HUMAN IMMUNOGLOBULIN G
     Indication: Immunodeficiency common variable

REACTIONS (9)
  - Infusion site pain [Unknown]
  - Pain [Unknown]
  - Infusion site extravasation [Unknown]
  - Wrong technique in product usage process [Unknown]
  - Infusion site haemorrhage [Unknown]
  - Wrong technique in product usage process [Unknown]
  - Muscle injury [Unknown]
  - Wrong technique in product usage process [Unknown]
  - Infusion site extravasation [Unknown]
